FAERS Safety Report 5325678-X (Version None)
Quarter: 2007Q2

REPORT INFORMATION
  Report Type: 
  Country: None (occurrence: None)
  Receive Date: 20070509
  Receipt Date: 20070501
  Transmission Date: 20071010
  Serious: Yes (Disabling, Other)
  Sender: FDA-Public Use
  Company Number: 2007SP005309

PATIENT
  Age: 35 Year
  Sex: Female
  Weight: 63.5036 kg

DRUGS (2)
  1. PEG-INTRON [Suspect]
     Indication: HEPATITIS C
     Dosage: 120 MCG;QW;SC
     Route: 058
     Dates: start: 20061110, end: 20070309
  2. REBETOL [Suspect]
     Indication: HEPATITIS C
     Dosage: 400 MG;BID;PO
     Route: 048
     Dates: start: 20061110, end: 20070309

REACTIONS (15)
  - ALOPECIA [None]
  - BLINDNESS [None]
  - CHOROIDITIS [None]
  - CONJUNCTIVAL HYPERAEMIA [None]
  - CORNEAL DEPOSITS [None]
  - DIARRHOEA [None]
  - IRITIS [None]
  - MACULAR OEDEMA [None]
  - MENINGITIS [None]
  - MIDDLE INSOMNIA [None]
  - RETINAL DETACHMENT [None]
  - VITREOUS DISORDER [None]
  - VOGT-KOYANAGI-HARADA SYNDROME [None]
  - VOMITING [None]
  - WEIGHT DECREASED [None]
